FAERS Safety Report 6418123-4 (Version None)
Quarter: 2009Q4

REPORT INFORMATION
  Report Type: 
  Country: None (occurrence: None)
  Receive Date: 20091028
  Receipt Date: 20090918
  Transmission Date: 20100525
  Serious: Yes (Death, Life-Threatening, Other)
  Sender: FDA-Public Use
  Company Number: US-BAXTER-2009BH011148

PATIENT
  Age: 63 Year
  Sex: Male
  Weight: 106 kg

DRUGS (29)
  1. HEPARIN SODIUM INJECTION [Suspect]
     Indication: DRUG USE FOR UNKNOWN INDICATION
     Route: 058
     Dates: start: 20071113, end: 20071116
  2. HEPARIN SODIUM 5,000 UNITS IN DEXTROSE 5% [Suspect]
     Indication: DRUG USE FOR UNKNOWN INDICATION
     Route: 041
     Dates: start: 20071116, end: 20071116
  3. ASPIRIN [Concomitant]
     Indication: THROMBOSIS PROPHYLAXIS
     Route: 065
     Dates: start: 20071101
  4. BETAINE [Concomitant]
     Indication: DRUG USE FOR UNKNOWN INDICATION
     Route: 065
  5. CALCIUM CITRATE [Concomitant]
     Indication: DRUG USE FOR UNKNOWN INDICATION
     Route: 065
  6. DILTIAZEM [Concomitant]
     Indication: DRUG USE FOR UNKNOWN INDICATION
     Route: 065
  7. DOCUSATE [Concomitant]
     Indication: DRUG USE FOR UNKNOWN INDICATION
     Route: 065
  8. METOCLOPRAMIDE [Concomitant]
     Indication: DRUG USE FOR UNKNOWN INDICATION
     Route: 065
  9. MULTI-VITAMINS [Concomitant]
     Indication: DRUG USE FOR UNKNOWN INDICATION
     Route: 065
  10. FISH OIL [Concomitant]
     Indication: DRUG USE FOR UNKNOWN INDICATION
     Route: 065
  11. OXYCODONE [Concomitant]
     Indication: PAIN
     Route: 065
  12. POTASSIUM CHLORIDE [Concomitant]
     Indication: DRUG USE FOR UNKNOWN INDICATION
     Route: 065
  13. LASIX [Concomitant]
     Indication: DRUG USE FOR UNKNOWN INDICATION
     Route: 065
  14. SENNA [Concomitant]
     Indication: DRUG USE FOR UNKNOWN INDICATION
     Route: 065
  15. HERBALS NOS W/MINERALS NOS/VITAMINS NOS [Concomitant]
     Indication: DRUG USE FOR UNKNOWN INDICATION
     Route: 065
  16. FIBRE, DIETARY [Concomitant]
     Indication: DRUG USE FOR UNKNOWN INDICATION
     Route: 065
  17. CALCIUM CITRATE [Concomitant]
     Route: 065
  18. LOVAZA [Concomitant]
     Indication: DRUG USE FOR UNKNOWN INDICATION
     Route: 065
  19. IBUPROFEN [Concomitant]
     Indication: DRUG USE FOR UNKNOWN INDICATION
     Route: 065
  20. FERROUS SULFATE TAB [Concomitant]
     Indication: DRUG USE FOR UNKNOWN INDICATION
     Route: 048
  21. ASCORBIC ACID [Concomitant]
     Indication: DRUG USE FOR UNKNOWN INDICATION
     Route: 048
  22. ANCEF [Concomitant]
     Indication: INFECTION PROPHYLAXIS
  23. LIDOCAINE [Concomitant]
     Indication: DRUG USE FOR UNKNOWN INDICATION
     Route: 014
     Dates: start: 20071101
  24. BUPIVACAINE HYDROCHLORIDE [Concomitant]
     Indication: DRUG USE FOR UNKNOWN INDICATION
     Route: 014
     Dates: start: 20071101
  25. KENALOG [Concomitant]
     Indication: DRUG USE FOR UNKNOWN INDICATION
     Route: 014
     Dates: start: 20071101
  26. MILK OF MAGNESIA TAB [Concomitant]
     Indication: CONSTIPATION
     Route: 065
     Dates: start: 20071101
  27. ZOSYN [Concomitant]
     Indication: DRUG USE FOR UNKNOWN INDICATION
     Route: 042
     Dates: start: 20071101
  28. MORPHINE SULFATE [Concomitant]
     Indication: PAIN
     Route: 041
     Dates: start: 20071101
  29. DILAUDID [Concomitant]
     Indication: PAIN
     Route: 041
     Dates: start: 20071101

REACTIONS (21)
  - AORTIC EMBOLUS [None]
  - ARTERIOSCLEROSIS CORONARY ARTERY [None]
  - BRAIN DEATH [None]
  - CARDIAC ARREST [None]
  - CHEST PAIN [None]
  - DIVERTICULITIS [None]
  - DRY MOUTH [None]
  - DYSPNOEA [None]
  - FEELING ABNORMAL [None]
  - HEPARIN-INDUCED THROMBOCYTOPENIA [None]
  - HYPERHIDROSIS [None]
  - LEUKOCYTOSIS [None]
  - MALAISE [None]
  - MYOCARDIAL INFARCTION [None]
  - PALPITATIONS [None]
  - PERITONITIS [None]
  - PULMONARY THROMBOSIS [None]
  - RENAL FAILURE [None]
  - RESTLESSNESS [None]
  - SEPTIC SHOCK [None]
  - THIRST [None]
